FAERS Safety Report 5919692-0 (Version None)
Quarter: 2008Q4

REPORT INFORMATION
  Report Type: 
  Country: None (occurrence: None)
  Receive Date: 20081010
  Receipt Date: 20081002
  Transmission Date: 20090506
  Serious: Yes (Hospitalization)
  Sender: FDA-Public Use
  Company Number: 000846

PATIENT
  Age: 74 Year
  Sex: Male
  Weight: 64 kg

DRUGS (3)
  1. PLETAL [Suspect]
     Indication: ARTERIOSCLEROSIS OBLITERANS
     Dosage: 200 MG, DAILY DOSE
     Route: 048
     Dates: start: 20070809, end: 20070813
  2. PLETAL [Suspect]
     Indication: ARTERIOSCLEROSIS OBLITERANS
     Dosage: 200 MG, DAILY DOSE
     Route: 048
     Dates: end: 20080204
  3. PLETAL [Suspect]
     Indication: ARTERIOSCLEROSIS OBLITERANS
     Dosage: 200 MG, DAILY DOSE
     Route: 048
     Dates: start: 20080215, end: 20080306

REACTIONS (6)
  - BACK PAIN [None]
  - HEADACHE [None]
  - HEPATIC CYST [None]
  - INFLAMMATION [None]
  - PYREXIA [None]
  - TREATMENT NONCOMPLIANCE [None]
